FAERS Safety Report 13529877 (Version 1)
Quarter: 2017Q2

REPORT INFORMATION
  Report Type: Spontaneous
  Country: US (occurrence: US)
  Receive Date: 20170509
  Receipt Date: 20170509
  Transmission Date: 20170830
  Serious: No
  Sender: FDA-Public Use
  Company Number: US-ROCHE-GNE309866

PATIENT
  Age: 74 Year
  Sex: Male
  Weight: 97.91 kg

DRUGS (1)
  1. XOLAIR [Suspect]
     Active Substance: OMALIZUMAB
     Indication: ASTHMA
     Dosage: 300 MG, Q2W
     Route: 058
     Dates: start: 20060524

REACTIONS (3)
  - Herpes zoster [Recovering/Resolving]
  - Injection site erythema [None]
  - Pain [None]

NARRATIVE: CASE EVENT DATE: 20101109
